FAERS Safety Report 12920564 (Version 1)
Quarter: 2016Q4

REPORT INFORMATION
  Report Type: Spontaneous
  Country: US (occurrence: US)
  Receive Date: 20161106
  Receipt Date: 20161106
  Transmission Date: 20170207
  Serious: Yes (Disabling)
  Sender: FDA-Public Use
  Company Number: None

PATIENT

DRUGS (1)
  1. METRONIDAZOL [Suspect]
     Active Substance: METRONIDAZOLE
     Indication: SINUSITIS
     Route: 048
     Dates: start: 20161103, end: 20161106

REACTIONS (1)
  - Insomnia [None]

NARRATIVE: CASE EVENT DATE: 20161104
